FAERS Safety Report 24998171 (Version 1)
Quarter: 2025Q1

REPORT INFORMATION
  Report Type: Spontaneous
  Country: US (occurrence: US)
  Receive Date: 20250222
  Receipt Date: 20250222
  Transmission Date: 20250409
  Serious: No
  Sender: SANOFI AVENTIS
  Company Number: US-SA-2025SA043482

PATIENT
  Age: 73 Year
  Sex: Male

DRUGS (21)
  1. SARCLISA [Suspect]
     Active Substance: ISATUXIMAB-IRFC
     Indication: Plasma cell myeloma
     Dosage: 822 MG, QW
     Route: 041
     Dates: start: 20240314
  2. SARCLISA [Suspect]
     Active Substance: ISATUXIMAB-IRFC
     Dosage: 900 MG, QW
     Route: 041
     Dates: start: 20250207
  3. PANTOPRAZOLE [Concomitant]
     Active Substance: PANTOPRAZOLE
  4. POTASSIUM ACETATE [Concomitant]
     Active Substance: POTASSIUM ACETATE
  5. OXYBUTYNIN [Concomitant]
     Active Substance: OXYBUTYNIN
  6. METOPROLOL [Concomitant]
     Active Substance: METOPROLOL
  7. MAGNESIUM OXIDE [Concomitant]
     Active Substance: MAGNESIUM OXIDE
  8. LEVOTHYROXINE [Concomitant]
     Active Substance: LEVOTHYROXINE
  9. CORTENEMA [Concomitant]
     Active Substance: HYDROCORTISONE
  10. FLUTICASONE [Concomitant]
     Active Substance: FLUTICASONE
  11. DEXAMETHASONE [Concomitant]
     Active Substance: DEXAMETHASONE
  12. CALCIUM CARBONATE [Concomitant]
     Active Substance: CALCIUM CARBONATE
  13. BUPRENORPHINE [Concomitant]
     Active Substance: BUPRENORPHINE
  14. ATORVASTATIN [Concomitant]
     Active Substance: ATORVASTATIN
  15. ACYCLOVIR [Concomitant]
     Active Substance: ACYCLOVIR
  16. ACETAMINOPHEN [Concomitant]
     Active Substance: ACETAMINOPHEN
  17. ALBUTEROL [Concomitant]
     Active Substance: ALBUTEROL
  18. BENZONATATE [Concomitant]
     Active Substance: BENZONATATE
  19. JANUVIA [Concomitant]
     Active Substance: SITAGLIPTIN PHOSPHATE
  20. POMALYST [Concomitant]
     Active Substance: POMALIDOMIDE
  21. PROCHLORPERAZINE [Concomitant]
     Active Substance: PROCHLORPERAZINE

REACTIONS (1)
  - Product use issue [Unknown]

NARRATIVE: CASE EVENT DATE: 20240314
